FAERS Safety Report 4357980-2 (Version None)
Quarter: 2004Q2

REPORT INFORMATION
  Report Type: 
  Country: None (occurrence: None)
  Receive Date: 20040510
  Receipt Date: 20040429
  Transmission Date: 20050107
  Serious: No
  Sender: FDA-Public Use
  Company Number: 2004UW08883

PATIENT
  Age: 59 Year
  Sex: Female
  Weight: 76.2043 kg

DRUGS (2)
  1. ARIMIDEX [Suspect]
     Indication: BREAST CANCER IN SITU
     Dosage: 1 MG PO
     Route: 048
     Dates: start: 20000101
  2. CORTISONE [Concomitant]

REACTIONS (5)
  - ARTHRALGIA [None]
  - BONE PAIN [None]
  - BREAST MASS [None]
  - ERYTHEMA NODOSUM [None]
  - MASS [None]
